FAERS Safety Report 6408611-9 (Version None)
Quarter: 2009Q4

REPORT INFORMATION
  Report Type: 
  Country: None (occurrence: None)
  Receive Date: 20091019
  Receipt Date: 20091015
  Transmission Date: 20100525
  Serious: Yes (Hospitalization)
  Sender: FDA-Public Use
  Company Number: 2009SP027183

PATIENT
  Age: 31 Year
  Sex: Male
  Weight: 72 kg

DRUGS (10)
  1. PEG-INTRON [Suspect]
     Indication: HEPATITIS C
     Dosage: 100 MCG;QW;SC
     Route: 058
     Dates: start: 20090728, end: 20090915
  2. REBETOL [Suspect]
     Indication: HEPATITIS C
     Dosage: 800 MG;QD;PO ; 600 MG;QD;PO
     Route: 048
     Dates: start: 20090728, end: 20090915
  3. REBETOL [Suspect]
     Indication: HEPATITIS C
     Dosage: 800 MG;QD;PO ; 600 MG;QD;PO
     Route: 048
     Dates: start: 20090916, end: 20090925
  4. LOCHOL [Concomitant]
  5. OMEPRAL [Concomitant]
  6. MEILAX [Concomitant]
  7. CEREKINON [Concomitant]
  8. PROHEPARUM [Concomitant]
  9. LANIRAPID [Concomitant]
  10. TICLOPIDINE HYDROCHLORIDE [Concomitant]

REACTIONS (3)
  - CARDIAC FAILURE [None]
  - INFUSION SITE CELLULITIS [None]
  - ORAL CANDIDIASIS [None]
